FAERS Safety Report 6043642-2 (Version None)
Quarter: 2009Q1

REPORT INFORMATION
  Report Type: 
  Country: None (occurrence: None)
  Receive Date: 20090120
  Receipt Date: 20090108
  Transmission Date: 20090719
  Serious: Yes (Hospitalization, Other)
  Sender: FDA-Public Use
  Company Number: CA-ROCHE-604684

PATIENT
  Sex: Female

DRUGS (3)
  1. PEG-INTERFERON ALFA 2A (RO 25-8310) [Suspect]
     Indication: HEPATITIS C
     Dosage: DOSAGE: 1 X WEEK
     Route: 058
     Dates: start: 20071030, end: 20071126
  2. PEG-INTERFERON ALFA 2A (RO 25-8310) [Suspect]
     Dosage: DOSE REDUCED
     Route: 058
     Dates: start: 20071126
  3. RIBAVIRIN [Suspect]
     Indication: HEPATITIS C
     Route: 048
     Dates: start: 20071030

REACTIONS (4)
  - APPENDICITIS [None]
  - FALL [None]
  - PLATELET COUNT DECREASED [None]
  - UPPER LIMB FRACTURE [None]
